FAERS Safety Report 9476882 (Version 2)
Quarter: 2013Q3

REPORT INFORMATION
  Report Type: Spontaneous
  Country: US (occurrence: US)
  Receive Date: 20130826
  Receipt Date: 20130912
  Transmission Date: 20140515
  Serious: Yes (Death, Life-Threatening, Hospitalization, Disabling)
  Sender: FDA-Public Use
  Company Number: US-GLAXOSMITHKLINE-A1038204A

PATIENT
  Age: 58 Year
  Sex: Male

DRUGS (14)
  1. VOTRIENT [Suspect]
     Indication: RENAL CELL CARCINOMA
     Dosage: 800MG PER DAY
     Route: 048
     Dates: start: 20130517
  2. AMLODIPINE [Concomitant]
  3. ANDROGEL [Concomitant]
  4. LORAZEPAM [Concomitant]
  5. TRILIPIX [Concomitant]
  6. WARFARIN [Concomitant]
  7. LISINOPRIL [Concomitant]
  8. KEPPRA [Concomitant]
  9. DEXAMETHASONE [Concomitant]
  10. ASPIRIN [Concomitant]
  11. MSM [Concomitant]
  12. MULTIVITAMINS [Concomitant]
  13. ZYRTEC [Concomitant]
  14. PARACETAMOL [Concomitant]

REACTIONS (1)
  - Death [Fatal]
